FAERS Safety Report 21001574 (Version 1)
Quarter: 2022Q2

REPORT INFORMATION
  Report Type: Spontaneous
  Country: US (occurrence: US)
  Receive Date: 20220624
  Receipt Date: 20220624
  Transmission Date: 20220720
  Serious: No
  Sender: FDA-Public Use
  Company Number: US-BioHaven Pharmaceuticals-2022BHV000942

PATIENT
  Age: 52 Year
  Sex: Male

DRUGS (1)
  1. NURTEC ODT [Suspect]
     Active Substance: RIMEGEPANT SULFATE
     Indication: Pain prophylaxis
     Dosage: ONE NURTEC TABLET EVERY OTHER DAY FOR PREVENTION OF NEUROPATHIC PAIN
     Route: 065

REACTIONS (1)
  - Off label use [Unknown]
